FAERS Safety Report 12518761 (Version 1)
Quarter: 2016Q2

REPORT INFORMATION
  Report Type: Spontaneous
  Country: US (occurrence: US)
  Receive Date: 20160630
  Receipt Date: 20160630
  Transmission Date: 20160815
  Serious: Yes (Other)
  Sender: FDA-Public Use
  Company Number: US-TEVA-671777USA

PATIENT
  Age: 28 Year
  Sex: Female

DRUGS (1)
  1. ZECUITY [Suspect]
     Active Substance: SUMATRIPTAN SUCCINATE
     Indication: MIGRAINE
     Route: 062
     Dates: start: 20160523, end: 20160523

REACTIONS (7)
  - Application site erythema [Recovered/Resolved]
  - Application site inflammation [Recovering/Resolving]
  - Application site discolouration [Recovering/Resolving]
  - Application site paraesthesia [Recovering/Resolving]
  - Sunburn [Recovering/Resolving]
  - Application site exfoliation [Recovering/Resolving]
  - Product physical issue [Recovering/Resolving]

NARRATIVE: CASE EVENT DATE: 20160523
